FAERS Safety Report 13319909 (Version 1)
Quarter: 2017Q1

REPORT INFORMATION
  Report Type: Report from Study
  Country: JP (occurrence: JP)
  Receive Date: 20170310
  Receipt Date: 20170310
  Transmission Date: 20170428
  Serious: Yes (Life-Threatening, Hospitalization, Other)
  Sender: FDA-Public Use
  Company Number: JP-ASTRAZENECA-2017SE24559

PATIENT
  Age: 20776 Day
  Sex: Female
  Weight: 53.8 kg

DRUGS (95)
  1. NOVORAPID [Concomitant]
     Active Substance: INSULIN ASPART
     Indication: DIABETES MELLITUS
     Dosage: 12.9 IU BASAL, 6 IU BOLUS DAILY
     Route: 058
     Dates: start: 20160408, end: 20160408
  2. NOVORAPID [Concomitant]
     Active Substance: INSULIN ASPART
     Indication: DIABETES MELLITUS
     Dosage: 12.9 IU BASAL, 6 IU BOLUS DAILY
     Route: 058
     Dates: start: 20160409, end: 20160409
  3. NOVORAPID [Concomitant]
     Active Substance: INSULIN ASPART
     Indication: DIABETES MELLITUS
     Dosage: 12 IU BASAL, 5 IU BOLUS DAILY
     Route: 058
     Dates: start: 20160414, end: 20160414
  4. NOVORAPID [Concomitant]
     Active Substance: INSULIN ASPART
     Indication: DIABETES MELLITUS
     Dosage: 12 IU BASAL,6 IU BOLUS DAILY
     Route: 058
     Dates: start: 20160417, end: 20160417
  5. NOVORAPID [Concomitant]
     Active Substance: INSULIN ASPART
     Indication: DIABETES MELLITUS
     Dosage: 12 IU BASAL, 5 IU BOLUS DAILY
     Route: 058
     Dates: start: 20160621, end: 20160621
  6. NOVORAPID [Concomitant]
     Active Substance: INSULIN ASPART
     Indication: DIABETES MELLITUS
     Dosage: 12 IU BASAL, 6 IU BOLUS DAILY
     Route: 058
     Dates: start: 20160919, end: 20160919
  7. INSULIN [Concomitant]
     Active Substance: INSULIN NOS
     Dates: start: 20160506, end: 20160518
  8. INSULIN [Concomitant]
     Active Substance: INSULIN NOS
     Dates: start: 20160519, end: 20160525
  9. INSULIN [Concomitant]
     Active Substance: INSULIN NOS
     Dates: start: 20160923, end: 20161005
  10. INSULIN [Concomitant]
     Active Substance: INSULIN NOS
     Dates: start: 20161013, end: 20161026
  11. INSULIN [Concomitant]
     Active Substance: INSULIN NOS
     Dates: start: 20161212, end: 20161212
  12. DAPAGLIFLOZIN [Suspect]
     Active Substance: DAPAGLIFLOZIN
     Indication: TYPE 1 DIABETES MELLITUS
     Route: 048
     Dates: start: 20160408, end: 20160506
  13. DAPAGLIFLOZIN [Suspect]
     Active Substance: DAPAGLIFLOZIN
     Indication: TYPE 1 DIABETES MELLITUS
     Route: 048
     Dates: start: 20161126, end: 20161224
  14. DAPAGLIFLOZIN [Suspect]
     Active Substance: DAPAGLIFLOZIN
     Indication: TYPE 1 DIABETES MELLITUS
     Route: 048
     Dates: start: 20170114, end: 20170302
  15. DAPAGLIFLOZIN [Suspect]
     Active Substance: DAPAGLIFLOZIN
     Indication: TYPE 1 DIABETES MELLITUS
     Route: 048
     Dates: start: 20170303, end: 20170305
  16. VALSARTAN. [Concomitant]
     Active Substance: VALSARTAN
     Indication: HYPERTENSION
     Route: 048
     Dates: start: 20160415
  17. NOVORAPID [Concomitant]
     Active Substance: INSULIN ASPART
     Indication: DIABETES MELLITUS
     Dosage: 12.9 IU BASAL, 9 IU BOLUS DAILY
     Route: 058
     Dates: start: 20160326, end: 20160326
  18. NOVORAPID [Concomitant]
     Active Substance: INSULIN ASPART
     Indication: DIABETES MELLITUS
     Dosage: 12.9 IU BASAL, 9 IU BOLUS DAILY
     Route: 058
     Dates: start: 20160406, end: 20160406
  19. NOVORAPID [Concomitant]
     Active Substance: INSULIN ASPART
     Indication: DIABETES MELLITUS
     Dosage: 12 IU BASAL, 6 IU BOLUS DAILY
     Route: 058
     Dates: start: 20160618, end: 20160618
  20. NOVORAPID [Concomitant]
     Active Substance: INSULIN ASPART
     Indication: DIABETES MELLITUS
     Dosage: 12 IU BASAL, 8.5 IU BOLUS DAILY
     Route: 058
     Dates: start: 20160619, end: 20160619
  21. NOVORAPID [Concomitant]
     Active Substance: INSULIN ASPART
     Indication: DIABETES MELLITUS
     Dosage: 12 IU BASAL, 5 IU BOLUS DAILY
     Route: 058
     Dates: start: 20160623, end: 20160623
  22. INSULIN [Concomitant]
     Active Substance: INSULIN NOS
     Dates: start: 20160603, end: 20160608
  23. INSULIN [Concomitant]
     Active Substance: INSULIN NOS
     Dates: start: 20160609, end: 20160615
  24. INSULIN [Concomitant]
     Active Substance: INSULIN NOS
     Dates: start: 20160908, end: 20160908
  25. INSULIN [Concomitant]
     Active Substance: INSULIN NOS
     Dates: start: 20161006, end: 20161012
  26. INSULIN [Concomitant]
     Active Substance: INSULIN NOS
     Dates: start: 20161229, end: 20170111
  27. DAPAGLIFLOZIN [Suspect]
     Active Substance: DAPAGLIFLOZIN
     Indication: TYPE 1 DIABETES MELLITUS
     Route: 048
     Dates: start: 20161112, end: 20161125
  28. DAPAGLIFLOZIN [Suspect]
     Active Substance: DAPAGLIFLOZIN
     Indication: TYPE 1 DIABETES MELLITUS
     Route: 048
     Dates: start: 20170306, end: 20170306
  29. AMLODIPINE [Concomitant]
     Active Substance: AMLODIPINE BESYLATE
     Indication: HYPERTENSION
     Route: 048
     Dates: start: 20160415
  30. NOVORAPID [Concomitant]
     Active Substance: INSULIN ASPART
     Indication: DIABETES MELLITUS
     Dosage: 12.9 IU BASAL, 9 IU BOLUS DAILY
     Route: 058
     Dates: start: 20160328, end: 20160328
  31. NOVORAPID [Concomitant]
     Active Substance: INSULIN ASPART
     Indication: DIABETES MELLITUS
     Dosage: 12.9 IU BASAL, 9 IU BOLUS DAILY
     Route: 058
     Dates: start: 20160329, end: 20160329
  32. NOVORAPID [Concomitant]
     Active Substance: INSULIN ASPART
     Indication: DIABETES MELLITUS
     Dosage: 12.9 IU BASAL, 9 IU BOLUS DAILY
     Route: 058
     Dates: start: 20160405, end: 20160405
  33. NOVORAPID [Concomitant]
     Active Substance: INSULIN ASPART
     Indication: DIABETES MELLITUS
     Dosage: 12.9 IU BASAL, 5 IU BOLUS DAILY
     Route: 058
     Dates: start: 20160412, end: 20160412
  34. NOVORAPID [Concomitant]
     Active Substance: INSULIN ASPART
     Indication: DIABETES MELLITUS
     Dosage: 12 IU BASAL, 6 IU BOLUS DAILY
     Route: 058
     Dates: start: 20160415, end: 20160415
  35. NOVORAPID [Concomitant]
     Active Substance: INSULIN ASPART
     Indication: DIABETES MELLITUS
     Dosage: 12 IU BASAL, 5 IU BOLUS DAILY
     Route: 058
     Dates: start: 20160418, end: 20160418
  36. NOVORAPID [Concomitant]
     Active Substance: INSULIN ASPART
     Indication: DIABETES MELLITUS
     Dosage: 12 IU BASAL, 7 IU BOLUS DAILY
     Route: 058
     Dates: start: 20160620, end: 20160620
  37. NOVORAPID [Concomitant]
     Active Substance: INSULIN ASPART
     Indication: DIABETES MELLITUS
     Dosage: 12 IU BASAL, 5 IU BOLUS DAILY
     Route: 058
     Dates: start: 20160622, end: 20160622
  38. NOVORAPID [Concomitant]
     Active Substance: INSULIN ASPART
     Indication: DIABETES MELLITUS
     Dosage: 12 IU BASAL, 6 IU BOLUS DAILY
     Route: 058
     Dates: start: 20160913, end: 20160913
  39. NOVORAPID [Concomitant]
     Active Substance: INSULIN ASPART
     Indication: DIABETES MELLITUS
     Dosage: 12 IU BASAL, 5 IU BOLUS DAILY
     Route: 058
     Dates: start: 20160914, end: 20160914
  40. NOVORAPID [Concomitant]
     Active Substance: INSULIN ASPART
     Indication: DIABETES MELLITUS
     Dosage: 12 IU BASAL, 5 IU BOLUS DAILY
     Route: 058
     Dates: start: 20160918, end: 20160918
  41. INSULIN [Concomitant]
     Active Substance: INSULIN NOS
     Dates: start: 20160804, end: 20160831
  42. INSULIN [Concomitant]
     Active Substance: INSULIN NOS
     Dates: start: 20160901, end: 20160907
  43. INSULIN [Concomitant]
     Active Substance: INSULIN NOS
     Dates: start: 20161103, end: 20161109
  44. DAPAGLIFLOZIN [Suspect]
     Active Substance: DAPAGLIFLOZIN
     Indication: TYPE 1 DIABETES MELLITUS
     Route: 048
     Dates: start: 20160827, end: 20160923
  45. DAPAGLIFLOZIN [Suspect]
     Active Substance: DAPAGLIFLOZIN
     Indication: TYPE 1 DIABETES MELLITUS
     Route: 048
     Dates: start: 20161225, end: 20170113
  46. VALSARTAN. [Concomitant]
     Active Substance: VALSARTAN
     Indication: HYPERTENSIVE NEPHROPATHY
     Route: 048
     Dates: start: 20160415
  47. NOVORAPID [Concomitant]
     Active Substance: INSULIN ASPART
     Indication: DIABETES MELLITUS
     Dosage: 12.9 IU BASAL, 10 IU BOLUS DAILY
     Route: 058
     Dates: start: 20160407, end: 20160407
  48. NOVORAPID [Concomitant]
     Active Substance: INSULIN ASPART
     Indication: DIABETES MELLITUS
     Dosage: 12.9 IU BASAL, 5 IU BOLUS DAILY
     Route: 058
     Dates: start: 20160413, end: 20160413
  49. NOVORAPID [Concomitant]
     Active Substance: INSULIN ASPART
     Indication: DIABETES MELLITUS
     Dosage: 12 IU BASAL, 8 IU BOLUS DAILY
     Route: 058
     Dates: start: 20160617, end: 20160617
  50. NOVORAPID [Concomitant]
     Active Substance: INSULIN ASPART
     Indication: DIABETES MELLITUS
     Dosage: 12 IU BASAL, 5 IU BOLUS DAILY
     Route: 058
     Dates: start: 20160910, end: 20160910
  51. NOVORAPID [Concomitant]
     Active Substance: INSULIN ASPART
     Indication: DIABETES MELLITUS
     Dosage: 12 IU BASAL, 5 IU BOLUS DAILY
     Route: 058
     Dates: start: 20160912, end: 20160912
  52. INSULIN [Concomitant]
     Active Substance: INSULIN NOS
     Dates: start: 20161027, end: 20161102
  53. DAPAGLIFLOZIN [Suspect]
     Active Substance: DAPAGLIFLOZIN
     Indication: TYPE 1 DIABETES MELLITUS
     Route: 048
     Dates: start: 20160507, end: 20160603
  54. DAPAGLIFLOZIN [Suspect]
     Active Substance: DAPAGLIFLOZIN
     Indication: TYPE 1 DIABETES MELLITUS
     Route: 048
     Dates: start: 20160604, end: 20160701
  55. DAPAGLIFLOZIN [Suspect]
     Active Substance: DAPAGLIFLOZIN
     Indication: TYPE 1 DIABETES MELLITUS
     Route: 048
     Dates: start: 20160702, end: 20160729
  56. DAPAGLIFLOZIN [Suspect]
     Active Substance: DAPAGLIFLOZIN
     Indication: TYPE 1 DIABETES MELLITUS
     Route: 048
     Dates: start: 20160730, end: 20160826
  57. AMLODIPINE [Concomitant]
     Active Substance: AMLODIPINE BESYLATE
     Indication: HYPERTENSIVE NEPHROPATHY
     Route: 048
     Dates: start: 20160415
  58. LANSOPRAZOLE. [Concomitant]
     Active Substance: LANSOPRAZOLE
     Indication: CHRONIC GASTRITIS
     Route: 048
     Dates: start: 20160731
  59. BIOFERMIN [Concomitant]
     Active Substance: BACILLUS SUBTILIS\LACTOBACILLUS ACIDOPHILUS\STREPTOCOCCUS FAECAIS
     Indication: DIARRHOEA
     Route: 048
     Dates: start: 20160713
  60. NOVORAPID [Concomitant]
     Active Substance: INSULIN ASPART
     Indication: DIABETES MELLITUS
     Dosage: 12.9 IU BASAL, 9 IU BOLUS DAILY
     Route: 058
     Dates: start: 20160324, end: 20160324
  61. NOVORAPID [Concomitant]
     Active Substance: INSULIN ASPART
     Indication: DIABETES MELLITUS
     Dosage: 12.9 IU BASAL, 9 IU BOLUS DAILY
     Route: 058
     Dates: start: 20160327, end: 20160327
  62. NOVORAPID [Concomitant]
     Active Substance: INSULIN ASPART
     Indication: DIABETES MELLITUS
     Dosage: 12.9 IU BASAL, 9 IU BOLUS DAILY
     Route: 058
     Dates: start: 20160330, end: 20160330
  63. NOVORAPID [Concomitant]
     Active Substance: INSULIN ASPART
     Indication: DIABETES MELLITUS
     Dosage: 12 IU BASAL, 5 IU BOLUS DAILY
     Route: 058
     Dates: start: 20160626, end: 20160626
  64. NOVORAPID [Concomitant]
     Active Substance: INSULIN ASPART
     Indication: DIABETES MELLITUS
     Dosage: 12 IU BASAL, 6.5 IU BOLUS DAILY
     Route: 058
     Dates: start: 20160629, end: 20160629
  65. NOVORAPID [Concomitant]
     Active Substance: INSULIN ASPART
     Indication: DIABETES MELLITUS
     Dosage: 12 IU BASAL, 5 IU BOLUS DAILY
     Route: 058
     Dates: start: 20160909, end: 20160909
  66. NOVORAPID [Concomitant]
     Active Substance: INSULIN ASPART
     Indication: DIABETES MELLITUS
     Dosage: 12 IU BASAL, 5 IU BOLUS DAILY
     Route: 058
     Dates: start: 20160916, end: 20160916
  67. INSULIN [Concomitant]
     Active Substance: INSULIN NOS
     Dates: start: 20160505, end: 20160505
  68. NOVORAPID [Concomitant]
     Active Substance: INSULIN ASPART
     Indication: DIABETES MELLITUS
     Dosage: 12.9 IU BASAL, 9 IU BOLUS DAILY
     Route: 058
     Dates: start: 20160325, end: 20160325
  69. NOVORAPID [Concomitant]
     Active Substance: INSULIN ASPART
     Indication: DIABETES MELLITUS
     Dosage: 12.9 IU BASAL, 9 IU BOLUS DAILY
     Route: 058
     Dates: start: 20160401, end: 20160401
  70. NOVORAPID [Concomitant]
     Active Substance: INSULIN ASPART
     Indication: DIABETES MELLITUS
     Dosage: 12.9 IU BASAL, 9 IU BOLUS DAILY
     Route: 058
     Dates: start: 20160403, end: 20160403
  71. NOVORAPID [Concomitant]
     Active Substance: INSULIN ASPART
     Indication: DIABETES MELLITUS
     Dosage: 12.9 IU BASAL, 9 IU BOLUS DAILY
     Route: 058
     Dates: start: 20160404, end: 20160404
  72. NOVORAPID [Concomitant]
     Active Substance: INSULIN ASPART
     Indication: DIABETES MELLITUS
     Dosage: 12 IU BASAL, 5 IU BOLUS DAILY
     Route: 058
     Dates: start: 20160624, end: 20160624
  73. NOVORAPID [Concomitant]
     Active Substance: INSULIN ASPART
     Indication: DIABETES MELLITUS
     Dosage: 12 IU BASAL, 6 IU BOLUS DAILY
     Route: 058
     Dates: start: 20160628, end: 20160628
  74. NOVORAPID [Concomitant]
     Active Substance: INSULIN ASPART
     Indication: DIABETES MELLITUS
     Dosage: 12 IU BASAL, 5 IU BOLUS DAILY
     Route: 058
     Dates: start: 20160917, end: 20160917
  75. NOVORAPID [Concomitant]
     Active Substance: INSULIN ASPART
     Indication: DIABETES MELLITUS
     Dosage: 12 IU BASAL, 5 IU BOLUS DAILY
     Route: 058
     Dates: start: 20160920, end: 20160920
  76. NOVORAPID [Concomitant]
     Active Substance: INSULIN ASPART
     Indication: DIABETES MELLITUS
     Dosage: 12 IU BASAL, 5 IU BOLUS DAILY
     Route: 058
     Dates: start: 20160922, end: 20160922
  77. INSULIN [Concomitant]
     Active Substance: INSULIN NOS
     Dates: start: 20161222, end: 20161228
  78. NOVORAPID [Concomitant]
     Active Substance: INSULIN ASPART
     Indication: DIABETES MELLITUS
     Dosage: 12.9 IU BASAL, 9 IU BOLUS DAILY
     Route: 058
     Dates: start: 20160402, end: 20160402
  79. NOVORAPID [Concomitant]
     Active Substance: INSULIN ASPART
     Indication: DIABETES MELLITUS
     Dosage: 12 IU BASAL, 6 IU BOLUS DAILY
     Route: 058
     Dates: start: 20160416, end: 20160416
  80. NOVORAPID [Concomitant]
     Active Substance: INSULIN ASPART
     Indication: DIABETES MELLITUS
     Dosage: 12 IU BASAL, 5 IU BOLUS DAILY
     Route: 058
     Dates: start: 20160625, end: 20160625
  81. NOVORAPID [Concomitant]
     Active Substance: INSULIN ASPART
     Indication: DIABETES MELLITUS
     Dosage: 12 IU BASAL, 5 IU BOLUS DAILY
     Route: 058
     Dates: start: 20160627, end: 20160627
  82. NOVORAPID [Concomitant]
     Active Substance: INSULIN ASPART
     Indication: DIABETES MELLITUS
     Dosage: 12 IU BASAL, 6 IU BOLUS DAILY
     Route: 058
     Dates: start: 20160630, end: 20160630
  83. NOVORAPID [Concomitant]
     Active Substance: INSULIN ASPART
     Indication: DIABETES MELLITUS
     Dosage: 12 IU BASAL, 6 IU BOLUS DAILY
     Route: 058
     Dates: start: 20160921, end: 20160921
  84. INSULIN [Concomitant]
     Active Substance: INSULIN NOS
     Dates: start: 20160616, end: 20160708
  85. INSULIN [Concomitant]
     Active Substance: INSULIN NOS
     Dates: start: 20161110, end: 20161221
  86. DAPAGLIFLOZIN [Suspect]
     Active Substance: DAPAGLIFLOZIN
     Indication: TYPE 1 DIABETES MELLITUS
     Route: 048
     Dates: start: 20160924, end: 20161111
  87. NOVORAPID [Concomitant]
     Active Substance: INSULIN ASPART
     Indication: DIABETES MELLITUS
     Dosage: 12.9 IU BASAL, 5 IU BOLUS DAILY
     Route: 058
     Dates: start: 20160410, end: 20160410
  88. NOVORAPID [Concomitant]
     Active Substance: INSULIN ASPART
     Indication: DIABETES MELLITUS
     Dosage: 12.9 IU BASAL, 5 IU BOLUS DAILY
     Route: 058
     Dates: start: 20160411, end: 20160411
  89. NOVORAPID [Concomitant]
     Active Substance: INSULIN ASPART
     Indication: DIABETES MELLITUS
     Dosage: 12 IU BASAL, 5 IU BOLUS DAILY
     Route: 058
     Dates: start: 20160419, end: 20160419
  90. NOVORAPID [Concomitant]
     Active Substance: INSULIN ASPART
     Indication: DIABETES MELLITUS
     Dosage: 12 IU BASAL, 6 IU BOLUS DAILY
     Route: 058
     Dates: start: 20160420, end: 20160420
  91. NOVORAPID [Concomitant]
     Active Substance: INSULIN ASPART
     Indication: DIABETES MELLITUS
     Dosage: 12 IU BASAL, 5 IU BOLUS DAILY
     Route: 058
     Dates: start: 20160911, end: 20160911
  92. NOVORAPID [Concomitant]
     Active Substance: INSULIN ASPART
     Indication: DIABETES MELLITUS
     Dosage: 12 IU BASAL, 5 IU BOLUS DAILY
     Route: 058
     Dates: start: 20160915, end: 20160915
  93. INSULIN [Concomitant]
     Active Substance: INSULIN NOS
     Dates: start: 20160421, end: 20160504
  94. INSULIN [Concomitant]
     Active Substance: INSULIN NOS
     Dates: start: 20160526, end: 20160601
  95. INSULIN [Concomitant]
     Active Substance: INSULIN NOS
     Dates: start: 20160729, end: 20160803

REACTIONS (1)
  - Diabetic ketoacidosis [Recovered/Resolved]

NARRATIVE: CASE EVENT DATE: 20170303
